FAERS Safety Report 7781425-3 (Version None)
Quarter: 2011Q3

REPORT INFORMATION
  Report Type: 
  Country: None (occurrence: None)
  Receive Date: 20110923
  Receipt Date: 20110919
  Transmission Date: 20111222
  Serious: Yes (Other)
  Sender: FDA-Public Use
  Company Number: NSR_00266_2011

PATIENT
  Age: 26 Year
  Sex: Female

DRUGS (2)
  1. METOCLOPRAMIDE [Suspect]
     Indication: GASTROENTERITIS
     Dosage: (INTRAVENOUS BOLUS)
     Route: 040
  2. TRAMADOL HCL [Concomitant]

REACTIONS (5)
  - AGITATION [None]
  - ANXIETY [None]
  - FEELING ABNORMAL [None]
  - CHEST DISCOMFORT [None]
  - AKATHISIA [None]
